FAERS Safety Report 5663530-0 (Version None)
Quarter: 2008Q1

REPORT INFORMATION
  Report Type: 
  Country: None (occurrence: None)
  Receive Date: 20080310
  Receipt Date: 20080221
  Transmission Date: 20080703
  Serious: Yes (Hospitalization)
  Sender: FDA-Public Use
  Company Number: 2008S1002859

PATIENT
  Age: 45 Year
  Sex: Male

DRUGS (6)
  1. ACYCLOVIR [Suspect]
     Indication: HERPES SIMPLEX
     Dosage: 1500 MG; INTRAVENOUS, 1500 MG; INTRAVENOUS, 1000 MG; INTRAVENOUS
     Route: 042
  2. OMEPRAZOLE [Concomitant]
  3. ACETYLSALICYLIC ACID SRT [Concomitant]
  4. PROPRANOLOL [Concomitant]
  5. GLYBURIDE [Concomitant]
  6. OMEPRAZOLE [Concomitant]

REACTIONS (14)
  - ACCIDENTAL OVERDOSE [None]
  - ANXIETY [None]
  - ASTHENIA [None]
  - BLOOD CREATINE INCREASED [None]
  - DISORIENTATION [None]
  - EXTENSOR PLANTAR RESPONSE [None]
  - GENERAL PHYSICAL HEALTH DETERIORATION [None]
  - MUSCLE SPASMS [None]
  - MYOCLONUS [None]
  - NYSTAGMUS [None]
  - POLYURIA [None]
  - SOMNOLENCE [None]
  - SPEECH DISORDER [None]
  - VOMITING [None]
